FAERS Safety Report 5964554-6 (Version None)
Quarter: 2008Q4

REPORT INFORMATION
  Report Type: 
  Country: None (occurrence: None)
  Receive Date: 20081125
  Receipt Date: 20081120
  Transmission Date: 20090506
  Serious: Yes (Life-Threatening, Hospitalization)
  Sender: FDA-Public Use
  Company Number: JP-BRISTOL-MYERS SQUIBB COMPANY-14414700

PATIENT
  Age: 40 Year
  Sex: Female

DRUGS (11)
  1. DESYREL [Suspect]
     Indication: PERSONALITY DISORDER
     Route: 048
     Dates: start: 20080812, end: 20080922
  2. MEILAX [Suspect]
     Indication: PERSONALITY DISORDER
     Route: 048
     Dates: start: 20080812, end: 20080922
  3. RIZE [Suspect]
     Indication: PERSONALITY DISORDER
     Route: 048
     Dates: start: 20080812, end: 20080922
  4. HALCION [Suspect]
     Indication: PERSONALITY DISORDER
     Route: 048
     Dates: start: 20080812, end: 20080922
  5. KENTAN [Suspect]
     Indication: BACK PAIN
     Dosage: ALSO RECEIVED FROM 12AUG2008-27AUG-2008
     Route: 048
     Dates: start: 20080822, end: 20080827
  6. DEPAKENE [Concomitant]
     Dates: start: 20061013, end: 20080922
  7. LUVOX [Concomitant]
     Dosage: 17OCT08-12AUG08 12AUG08-22SEP08.
     Dates: start: 20071017, end: 20080922
  8. MYSLEE [Concomitant]
     Dates: start: 20080404, end: 20080922
  9. CHLORPHENESIN CARBAMATE BULK-EXPORT [Concomitant]
     Dates: start: 20080822, end: 20080827
  10. SUCRALFATE [Concomitant]
     Dates: start: 20080822, end: 20080827
  11. KEFLEX [Concomitant]
     Dates: start: 20080913, end: 20080915

REACTIONS (3)
  - ANOREXIA [None]
  - LIVER DISORDER [None]
  - NAUSEA [None]
